FAERS Safety Report 12243549 (Version 1)
Quarter: 2016Q2

REPORT INFORMATION
  Report Type: Spontaneous
  Country: US (occurrence: US)
  Receive Date: 20160406
  Receipt Date: 20160406
  Transmission Date: 20160815
  Serious: Yes (Other)
  Sender: FDA-Public Use
  Company Number: US-GLAXOSMITHKLINE-US2016046412

PATIENT
  Sex: Male

DRUGS (1)
  1. AVANDAMET [Suspect]
     Active Substance: METFORMIN HYDROCHLORIDE\ROSIGLITAZONE MALEATE
     Indication: DIABETES MELLITUS
     Dosage: 2/500
     Route: 048
     Dates: start: 2005, end: 2012

REACTIONS (3)
  - Loss of consciousness [Recovered/Resolved]
  - Chest pain [Recovered/Resolved with Sequelae]
  - Weight increased [Recovered/Resolved]

NARRATIVE: CASE EVENT DATE: 2011
